FAERS Safety Report 6346615-5 (Version None)
Quarter: 2009Q3

REPORT INFORMATION
  Report Type: 
  Country: None (occurrence: None)
  Receive Date: 20090827
  Receipt Date: 20090814
  Transmission Date: 20100115
  Serious: Yes (Other)
  Sender: FDA-Public Use
  Company Number: 2009255091

PATIENT
  Sex: Male
  Weight: 1.6 kg

DRUGS (1)
  1. DALTEPARIN SODIUM [Suspect]
     Dosage: TRANSPLACENTAL
     Route: 064

REACTIONS (20)
  - ANAEMIA NEONATAL [None]
  - APGAR SCORE ABNORMAL [None]
  - BLOOD FIBRINOGEN DECREASED [None]
  - BRADYCARDIA NEONATAL [None]
  - BRAIN STEM AUDITORY EVOKED RESPONSE ABNORMAL [None]
  - CAESAREAN SECTION [None]
  - COAGULATION FACTOR XIII LEVEL DECREASED [None]
  - DEAFNESS NEUROSENSORY [None]
  - ELECTROENCEPHALOGRAM ABNORMAL [None]
  - FEEDING DISORDER NEONATAL [None]
  - GASTROOESOPHAGEAL REFLUX DISEASE [None]
  - HEMIPARESIS [None]
  - INFANTILE APNOEIC ATTACK [None]
  - INTERNATIONAL NORMALISED RATIO INCREASED [None]
  - MATERNAL DRUGS AFFECTING FOETUS [None]
  - NEONATAL RESPIRATORY DISTRESS SYNDROME [None]
  - OTOACOUSTIC EMISSIONS TEST ABNORMAL [None]
  - PREMATURE BABY [None]
  - SUBDURAL HAEMORRHAGE NEONATAL [None]
  - THROMBOCYTOPENIA NEONATAL [None]
